FAERS Safety Report 16784467 (Version 7)
Quarter: 2020Q1

REPORT INFORMATION
  Report Type: Spontaneous
  Country: IE (occurrence: IE)
  Receive Date: 20190909
  Receipt Date: 20200102
  Transmission Date: 20200409
  Serious: Yes (Other)
  Sender: FDA-Public Use
  Company Number: IE-BEH-2019106634

PATIENT
  Age: 72 Year
  Sex: Female

DRUGS (16)
  1. RESPREEZA [Suspect]
     Active Substance: .ALPHA.1-PROTEINASE INHIBITOR HUMAN
     Dosage: UNK
     Route: 042
  2. OMNIFLUSH [Concomitant]
     Dosage: 10 MILLILITER X 2
     Route: 042
  3. RESPREEZA [Suspect]
     Active Substance: .ALPHA.1-PROTEINASE INHIBITOR HUMAN
     Dosage: UNK
     Route: 065
     Dates: start: 20161221, end: 20161221
  4. RESPREEZA [Suspect]
     Active Substance: .ALPHA.1-PROTEINASE INHIBITOR HUMAN
     Dosage: 6840 MILLIGRAM, TOT (DOUBLE DOSE)
     Route: 042
     Dates: start: 20191002, end: 20191002
  5. OXYGEN. [Concomitant]
     Active Substance: OXYGEN
  6. RESPREEZA [Suspect]
     Active Substance: .ALPHA.1-PROTEINASE INHIBITOR HUMAN
     Dosage: 1000 MILLIGRAM X 7
     Route: 042
  7. RESPREEZA [Suspect]
     Active Substance: .ALPHA.1-PROTEINASE INHIBITOR HUMAN
     Dosage: 6480 MILLIGRAM, TOT (3420MG X 2= 6480MG)
     Route: 042
     Dates: start: 201610
  8. WATER FOR INJECTION [Concomitant]
     Active Substance: WATER
     Dosage: 20 MILLILITER X 7
     Route: 042
  9. SODIUM CHLORIDE. [Concomitant]
     Active Substance: SODIUM CHLORIDE
     Dosage: 50 MILLILITER FLUSH
  10. RESPREEZA [Suspect]
     Active Substance: .ALPHA.1-PROTEINASE INHIBITOR HUMAN
     Dosage: UNK
     Route: 065
     Dates: start: 20170510, end: 20170510
  11. OMNIFLUSH [Concomitant]
     Dosage: 10 MILLILITER X 2
     Route: 042
  12. RESPREEZA [Suspect]
     Active Substance: .ALPHA.1-PROTEINASE INHIBITOR HUMAN
     Indication: ALPHA-1 ANTI-TRYPSIN DEFICIENCY
     Dosage: UNK
     Route: 065
     Dates: start: 20161130, end: 20161130
  13. RESPREEZA [Suspect]
     Active Substance: .ALPHA.1-PROTEINASE INHIBITOR HUMAN
     Dosage: UNK
     Route: 065
     Dates: start: 20190327, end: 20190327
  14. RESPREEZA [Suspect]
     Active Substance: .ALPHA.1-PROTEINASE INHIBITOR HUMAN
     Dosage: 3420 MILLIGRAM, TOT (NORMAL DOSE)
     Route: 042
  15. RESPREEZA [Suspect]
     Active Substance: .ALPHA.1-PROTEINASE INHIBITOR HUMAN
     Dosage: 6840 MILLIGRAM, TOT (3420MG X 2= 6480MG)
     Route: 042
     Dates: start: 20191218, end: 20191218
  16. WATER FOR INJECTION [Concomitant]
     Active Substance: WATER
     Dosage: UNK, X 7
     Route: 042

REACTIONS (3)
  - Lower respiratory tract infection [Recovered/Resolved]
  - No adverse event [Unknown]
  - Prescribed overdose [Unknown]

NARRATIVE: CASE EVENT DATE: 20191106
